FAERS Safety Report 8365089-6 (Version None)
Quarter: 2012Q2

REPORT INFORMATION
  Report Type: 
  Country: None (occurrence: None)
  Receive Date: 20120516
  Receipt Date: 20120509
  Transmission Date: 20120825
  Serious: Yes (Hospitalization)
  Sender: FDA-Public Use
  Company Number: US-ELI_LILLY_AND_COMPANY-US201205004683

PATIENT
  Sex: Female

DRUGS (1)
  1. HUMALOG MIX 75/25 [Suspect]
     Dosage: 35 U, BID
     Dates: start: 20120201

REACTIONS (3)
  - CONFUSIONAL STATE [None]
  - FALL [None]
  - LIGAMENT SPRAIN [None]
